FAERS Safety Report 16744764 (Version 1)
Quarter: 2019Q4

REPORT INFORMATION
  Report Type: Spontaneous
  Country: US (occurrence: US)
  Receive Date: 20190826
  Receipt Date: 20190826
  Transmission Date: 20200122
  Serious: Yes (Other)
  Sender: FDA-Public Use
  Company Number: None

PATIENT
  Age: 63 Year
  Sex: Female
  Weight: 76.5 kg

DRUGS (1)
  1. NDC 31722-551-90 LEVOCETIRIZINE DIHYDROCHLORIDE TAB 5 MG [Suspect]
     Active Substance: LEVOCETIRIZINE DIHYDROCHLORIDE
     Indication: MAST CELL ACTIVATION SYNDROME
     Dosage: ?          QUANTITY:2 TABLET(S);?
     Route: 048
     Dates: start: 20190714, end: 20190825

REACTIONS (9)
  - Myalgia [None]
  - Pain of skin [None]
  - Malaise [None]
  - Abdominal discomfort [None]
  - Product substitution issue [None]
  - Agitation [None]
  - Bone pain [None]
  - Pain [None]
  - Diarrhoea [None]

NARRATIVE: CASE EVENT DATE: 20190825
